FAERS Safety Report 25630924 (Version 1)
Quarter: 2025Q3

REPORT INFORMATION
  Report Type: Report from Study
  Country: US (occurrence: US)
  Receive Date: 20250801
  Receipt Date: 20250801
  Transmission Date: 20251021
  Serious: Yes (Other)
  Sender: JOHNSON AND JOHNSON
  Company Number: US-JNJFOC-20250633311

PATIENT
  Age: 36 Year
  Sex: Female

DRUGS (2)
  1. SPRAVATO [Suspect]
     Active Substance: ESKETAMINE
     Indication: Depression
     Route: 045
     Dates: start: 20250610, end: 20250610
  2. SPRAVATO [Suspect]
     Active Substance: ESKETAMINE
     Dosage: ^84 MG, 10 TOTAL DOSES^
     Route: 045
     Dates: start: 20250612, end: 20250722

REACTIONS (11)
  - Dystonia [Unknown]
  - Taste disorder [Unknown]
  - Paraesthesia oral [Unknown]
  - Headache [Unknown]
  - Dizziness [Unknown]
  - Nausea [Unknown]
  - Pollakiuria [Unknown]
  - Abdominal pain upper [Unknown]
  - Burning sensation [Unknown]
  - Pain in extremity [Unknown]
  - Bladder irritation [Unknown]

NARRATIVE: CASE EVENT DATE: 20250101
